FAERS Safety Report 10587491 (Version 1)
Quarter: 2014Q4

REPORT INFORMATION
  Report Type: Spontaneous
  Country: US (occurrence: US)
  Receive Date: 20141117
  Receipt Date: 20141117
  Transmission Date: 20150529
  Serious: No
  Sender: FDA-Public Use
  Company Number: US-PFIZER INC-2014311765

PATIENT
  Age: 48 Year
  Sex: Male
  Weight: 75 kg

DRUGS (5)
  1. TIKOSYN [Suspect]
     Active Substance: DOFETILIDE
     Indication: SUPRAVENTRICULAR EXTRASYSTOLES
  2. TIKOSYN [Suspect]
     Active Substance: DOFETILIDE
     Indication: ATRIAL FIBRILLATION
     Dosage: 275 ?G, 2X/DAY
     Dates: start: 201403
  3. PRILOSEC [Concomitant]
     Active Substance: OMEPRAZOLE MAGNESIUM
     Dosage: UNK
  4. BABY ASPIRIN [Concomitant]
     Active Substance: ASPIRIN
     Dosage: UNK
  5. CLONAZEPAM. [Concomitant]
     Active Substance: CLONAZEPAM
     Dosage: UNK

REACTIONS (6)
  - Nasopharyngitis [Unknown]
  - Tinnitus [Unknown]
  - Nerve injury [Unknown]
  - Condition aggravated [Unknown]
  - Back pain [Unknown]
  - Cough [Unknown]

NARRATIVE: CASE EVENT DATE: 2014
